FAERS Safety Report 16229820 (Version 1)
Quarter: 2019Q2

REPORT INFORMATION
  Report Type: Spontaneous
  Country: US (occurrence: US)
  Receive Date: 20190423
  Receipt Date: 20190423
  Transmission Date: 20190711
  Serious: Yes (Hospitalization)
  Sender: FDA-Public Use
  Company Number: US-OTSUKA-2019_013597

PATIENT
  Age: 33 Year
  Sex: Male

DRUGS (2)
  1. ABILIFY [Suspect]
     Active Substance: ARIPIPRAZOLE
     Indication: SCHIZOPHRENIA
     Dosage: UNK
     Route: 065
     Dates: end: 2018
  2. ABILIFY [Suspect]
     Active Substance: ARIPIPRAZOLE
     Indication: PARANOIA

REACTIONS (15)
  - Loss of personal independence in daily activities [Unknown]
  - Depressed mood [Unknown]
  - Hypersomnia [Unknown]
  - Anxiety [Unknown]
  - Disease recurrence [Unknown]
  - Refusal of treatment by patient [Unknown]
  - Road traffic accident [Unknown]
  - Disturbance in attention [Unknown]
  - Logorrhoea [Unknown]
  - Irritability [Unknown]
  - Treatment noncompliance [Unknown]
  - Therapy cessation [Unknown]
  - Abnormal behaviour [Unknown]
  - Asthenia [Unknown]
  - Product use in unapproved indication [Unknown]

NARRATIVE: CASE EVENT DATE: 201902
